FAERS Safety Report 10481025 (Version 1)
Quarter: 2014Q3

REPORT INFORMATION
  Report Type: Spontaneous
  Country: ES (occurrence: ES)
  Receive Date: 20140929
  Receipt Date: 20140929
  Transmission Date: 20150326
  Serious: Yes (Other)
  Sender: FDA-Public Use
  Company Number: ES-ELI_LILLY_AND_COMPANY-ES201409005975

PATIENT
  Age: 47 Year
  Sex: Female

DRUGS (1)
  1. CYMBALTA [Suspect]
     Active Substance: DULOXETINE HYDROCHLORIDE
     Indication: DEPRESSION
     Dosage: UNK, UNKNOWN
     Route: 065

REACTIONS (7)
  - Mouth ulceration [Unknown]
  - Tongue ulceration [Unknown]
  - Jaundice [Unknown]
  - Weight increased [Unknown]
  - Eye swelling [Unknown]
  - Swelling face [Unknown]
  - Fatigue [Unknown]
